FAERS Safety Report 11032603 (Version 2)
Quarter: 2015Q2

REPORT INFORMATION
  Report Type: Spontaneous
  Country: JP (occurrence: JP)
  Receive Date: 20150415
  Receipt Date: 20150521
  Transmission Date: 20150821
  Serious: Yes (Life-Threatening)
  Sender: FDA-Public Use
  Company Number: JP-ASTELLAS-2015JP006679

PATIENT
  Age: 76 Year
  Sex: Male
  Weight: 61 kg

DRUGS (11)
  1. XTANDI [Suspect]
     Active Substance: ENZALUTAMIDE
     Route: 048
     Dates: start: 20150330
  2. L CARTIN [Concomitant]
     Indication: INCREASED APPETITE
     Route: 048
     Dates: start: 20150310, end: 20150317
  3. SHAKUYAKUKANZOTO [Concomitant]
     Active Substance: HERBALS
     Indication: INCREASED APPETITE
     Route: 048
     Dates: start: 20150310, end: 20150317
  4. AZUCURENIN [Concomitant]
     Indication: PROPHYLAXIS
     Dosage: 2G, THRICE DAILY
     Route: 048
     Dates: start: 20150323
  5. DECADRON [Concomitant]
     Active Substance: DEXAMETHASONE
     Indication: PRODUCT USED FOR UNKNOWN INDICATION
     Route: 048
     Dates: start: 20150203
  6. XTANDI [Suspect]
     Active Substance: ENZALUTAMIDE
     Route: 048
  7. XTANDI [Suspect]
     Active Substance: ENZALUTAMIDE
     Indication: PROSTATE CANCER
     Route: 048
     Dates: start: 20150213, end: 20150214
  8. XTANDI [Suspect]
     Active Substance: ENZALUTAMIDE
     Indication: PROPHYLAXIS
     Route: 048
     Dates: start: 20150215, end: 20150322
  9. FAMOTIDINE. [Concomitant]
     Active Substance: FAMOTIDINE
     Indication: PRODUCT USED FOR UNKNOWN INDICATION
     Route: 048
     Dates: start: 20150203
  10. CIMETIDINE [Concomitant]
     Active Substance: CIMETIDINE
     Indication: PROPHYLAXIS
     Route: 048
     Dates: start: 20150323
  11. TOUGHMAC E [Concomitant]
     Active Substance: AMYLASE\LIPASE\PROTEASE
     Indication: PROPHYLAXIS
     Route: 048
     Dates: start: 20150323

REACTIONS (4)
  - Metamyelocyte count increased [Recovering/Resolving]
  - Intentional product use issue [Unknown]
  - Malaise [Unknown]
  - Myelocyte count increased [Recovering/Resolving]

NARRATIVE: CASE EVENT DATE: 20150213
